FAERS Safety Report 4831518-5 (Version None)
Quarter: 2005Q4

REPORT INFORMATION
  Report Type: 
  Country: None (occurrence: None)
  Receive Date: 20051114
  Receipt Date: 20051102
  Transmission Date: 20060501
  Serious: Yes (Life-Threatening, Hospitalization)
  Sender: FDA-Public Use
  Company Number: 2004105532

PATIENT
  Age: 51 Year
  Sex: Male

DRUGS (5)
  1. DOXAZOSIN MESYLATE [Suspect]
     Indication: ILL-DEFINED DISORDER
     Dosage: 56 MG, ORAL
     Route: 048
     Dates: start: 20041204
  2. ADALAT [Suspect]
     Indication: ILL-DEFINED DISORDER
     Dosage: 520 MG, ORAL
     Route: 048
     Dates: start: 20041204
  3. TANATRIL ^TANABE^ (IMIDAPRIL HYDROCHLORIDE) [Suspect]
     Indication: ILL-DEFINED DISORDER
     Dosage: 170 MG,ORAL
     Route: 048
     Dates: start: 20041204
  4. ROXATIDINE ACETATE HCL [Suspect]
     Indication: ILL-DEFINED DISORDER
     Dosage: 975 MG, ORAL
     Route: 048
     Dates: start: 20041204
  5. ALLOPURINOL [Suspect]
     Indication: ILL-DEFINED DISORDER
     Dosage: 1200 MG

REACTIONS (12)
  - ALCOHOL USE [None]
  - BLOOD PRESSURE SYSTOLIC INCREASED [None]
  - COMA [None]
  - CONDITION AGGRAVATED [None]
  - EPILEPSY [None]
  - HEART RATE INCREASED [None]
  - MULTIPLE DRUG OVERDOSE [None]
  - SHOCK [None]
  - SNORING [None]
  - SOMNOLENCE [None]
  - SUICIDE ATTEMPT [None]
  - THERAPY NON-RESPONDER [None]
